FAERS Safety Report 4283304-5 (Version None)
Quarter: 2004Q1

REPORT INFORMATION
  Report Type: 
  Country: None (occurrence: None)
  Receive Date: 20040129
  Receipt Date: 20040115
  Transmission Date: 20041129
  Serious: Yes (Hospitalization)
  Sender: FDA-Public Use
  Company Number: DE-JNJFOC-20040102876

PATIENT
  Age: 29 Year
  Sex: Female
  Weight: 55 kg

DRUGS (10)
  1. REMICADE [Suspect]
     Indication: CROHN'S DISEASE
     Dosage: SEE IMAGE
     Route: 042
     Dates: start: 20031209, end: 20031209
  2. REMICADE [Suspect]
     Indication: CROHN'S DISEASE
     Dosage: SEE IMAGE
     Route: 042
     Dates: start: 20031229, end: 20031229
  3. PREDNISOLONE [Concomitant]
  4. METHOTREXATE [Concomitant]
  5. MESALAZINE (MESALAZINE) [Concomitant]
  6. CALCIUM (CALCIUM) [Concomitant]
  7. FOLIC ACID [Concomitant]
  8. NYSTATIN [Concomitant]
  9. LACTULOSIS (LACTANOSE) [Concomitant]
  10. BUDESONIDE (BUDESONIDE) [Concomitant]

REACTIONS (2)
  - ILEAL STENOSIS [None]
  - INTESTINAL FISTULA [None]
